FAERS Safety Report 10384326 (Version 2)
Quarter: 2019Q1

REPORT INFORMATION
  Report Type: Spontaneous
  Country: GB (occurrence: GB)
  Receive Date: 20140814
  Receipt Date: 20190130
  Transmission Date: 20190417
  Serious: Yes (Life-Threatening)
  Sender: FDA-Public Use
  Company Number: GB-MYLAN-2014M1000412

PATIENT
  Age: 1 Year
  Sex: Female
  Weight: 10 kg

DRUGS (1)
  1. FENTANYL. [Suspect]
     Active Substance: FENTANYL
     Indication: ARTHRITIS
     Dosage: PATCH 100MICROGRAMS PER HOUR, 24 HRS BEFORE DUE TO BE CHANGED
     Route: 062

REACTIONS (5)
  - Accidental exposure to product by child [Unknown]
  - Irritability [Unknown]
  - Cyanosis [Recovered/Resolved]
  - Decerebrate posture [Recovered/Resolved]
  - Apnoeic attack [Recovered/Resolved]

NARRATIVE: CASE EVENT DATE: 20140621
